FAERS Safety Report 19441226 (Version 1)
Quarter: 2021Q2

REPORT INFORMATION
  Report Type: Report from Study
  Country: GB (occurrence: GB)
  Receive Date: 20210621
  Receipt Date: 20210621
  Transmission Date: 20210717
  Serious: Yes (Hospitalization)
  Sender: FDA-Public Use
  Company Number: NVSC2021GB116145

PATIENT
  Sex: Female

DRUGS (4)
  1. HYRIMOZ [Suspect]
     Active Substance: ADALIMUMAB-ADAZ
     Indication: CROHN^S DISEASE
     Dosage: 160 MG, QW
     Route: 065
     Dates: start: 20210507
  2. HYRIMOZ [Suspect]
     Active Substance: ADALIMUMAB-ADAZ
     Dosage: 40 MG, Q4W AND THEREAFTER
     Route: 065
  3. HYRIMOZ [Suspect]
     Active Substance: ADALIMUMAB-ADAZ
     Dosage: 80 MG, Q2W
     Route: 065
  4. HYRIMOZ [Suspect]
     Active Substance: ADALIMUMAB-ADAZ
     Dosage: 40 MG, E2W
     Route: 065

REACTIONS (3)
  - Urinary tract neoplasm [Unknown]
  - Pneumonia [Unknown]
  - Urinary tract infection [Unknown]
